FAERS Safety Report 5853445-7 (Version None)
Quarter: 2008Q3

REPORT INFORMATION
  Report Type: 
  Country: None (occurrence: None)
  Receive Date: 20080820
  Receipt Date: 20080812
  Transmission Date: 20090109
  Serious: Yes (Death, Other)
  Sender: FDA-Public Use
  Company Number: GXKR2008NL07614

PATIENT
  Age: 41 Year
  Sex: Male

DRUGS (9)
  1. PREDNISONE [Suspect]
     Indication: PERIPHERAL T-CELL LYMPHOMA UNSPECIFIED
     Dosage: 8-CHOP CYCLES, 14 DAY INTERVALS, UNKNOWN
     Dates: end: 20061001
  2. ALEMTUZUMAB (ALEMTUZUMAB, CAMPATH-TH) [Suspect]
     Indication: PERIPHERAL T-CELL LYMPHOMA UNSPECIFIED
     Dosage: 30 MG, 3 DOSES PER CHOP CYCLE, UNKNOWN
     Dates: end: 20061001
  3. CYCLOPHOSPHAMIDE [Suspect]
     Indication: PERIPHERAL T-CELL LYMPHOMA UNSPECIFIED
     Dosage: 8 CHOP CYCLES, 14 DAY INTERVALS, UNKNOWN
     Dates: end: 20061001
  4. ADRIAMYCIN PFS [Suspect]
     Indication: PERIPHERAL T-CELL LYMPHOMA UNSPECIFIED
     Dosage: 8 CHOP CYCLES, 14 DAY INTERVALS, UNKNOWN
     Dates: end: 20061001
  5. ONCOVIN [Suspect]
     Indication: PERIPHERAL T-CELL LYMPHOMA UNSPECIFIED
     Dosage: 8 CHOP CYCLES, 14 DAY INTERVALS, UNKNOWN
     Dates: end: 20061001
  6. CO-TRIMOXAZOLE (CO-TRIMOXAZOLE) [Concomitant]
  7. VALACYCLOVIR [Concomitant]
  8. FLUCONAZOLE [Concomitant]
  9. GANCICLOVIR [Concomitant]

REACTIONS (9)
  - CYTOMEGALOVIRUS INFECTION [None]
  - DUODENAL OBSTRUCTION [None]
  - DUODENAL ULCER [None]
  - DUODENITIS [None]
  - FEBRILE NEUTROPENIA [None]
  - HISTIOCYTOSIS HAEMATOPHAGIC [None]
  - LYMPHOPROLIFERATIVE DISORDER [None]
  - MASS [None]
  - T-CELL LYMPHOMA [None]
